FAERS Safety Report 9868082 (Version 1)
Quarter: 2014Q1

REPORT INFORMATION
  Report Type: Spontaneous
  Country: US (occurrence: US)
  Receive Date: 20140204
  Receipt Date: 20140204
  Transmission Date: 20141002
  Serious: Yes (Hospitalization, Other)
  Sender: FDA-Public Use
  Company Number: US-UCBSA-110877

PATIENT
  Sex: Male

DRUGS (4)
  1. CIMZIA [Suspect]
     Indication: CROHN^S DISEASE
     Dosage: LOADING DOSE: TWICE FOR 3 WEEKS
  2. CIMZIA [Suspect]
     Indication: CROHN^S DISEASE
  3. ROCEPHIN [Concomitant]
     Route: 042
  4. CEFTIN [Concomitant]

REACTIONS (5)
  - Renal failure chronic [Unknown]
  - Pyelonephritis [Recovered/Resolved]
  - Sepsis [Recovered/Resolved]
  - Urinary tract infection [Unknown]
  - Nephrolithiasis [Recovered/Resolved]
